FAERS Safety Report 5309451-4 (Version None)
Quarter: 2007Q2

REPORT INFORMATION
  Report Type: 
  Country: None (occurrence: None)
  Receive Date: 20070427
  Receipt Date: 20070419
  Transmission Date: 20071010
  Serious: Yes (Other)
  Sender: FDA-Public Use
  Company Number: PHEH2006US13835

PATIENT
  Age: 79 Year
  Sex: Female

DRUGS (13)
  1. ZOMETA [Suspect]
     Indication: BREAST CANCER METASTATIC
     Dosage: 4 MG, QMO
     Dates: start: 20050605, end: 20060501
  2. FEMARA [Concomitant]
  3. LOVENOX [Concomitant]
     Indication: PULMONARY EMBOLISM
     Dosage: 90 UNK, QD
     Route: 058
     Dates: start: 20060301
  4. CARDIZEM [Concomitant]
  5. CALCIUM W/VITAMIN D NOS [Concomitant]
  6. RITUXAN [Concomitant]
  7. CYTOXAN [Concomitant]
     Dosage: 100 MG, UNK
     Dates: start: 20020406, end: 20060601
  8. DETROL [Concomitant]
  9. FLOMAX [Concomitant]
  10. TOPROL-XL [Concomitant]
  11. LASIX [Concomitant]
  12. ACIDOPHILUS [Concomitant]
  13. PROCRIT [Concomitant]
     Dosage: UNK, QW

REACTIONS (9)
  - BONE DEBRIDEMENT [None]
  - BONE DISORDER [None]
  - COMPUTERISED TOMOGRAM ABNORMAL [None]
  - GINGIVAL INJURY [None]
  - IMPAIRED HEALING [None]
  - JAW OPERATION [None]
  - OSTEONECROSIS [None]
  - PULMONARY EMBOLISM [None]
  - TOOTH LOSS [None]
